FAERS Safety Report 9260368 (Version 2)
Quarter: 2013Q2

REPORT INFORMATION
  Report Type: Report from Study
  Country: AU (occurrence: AU)
  Receive Date: 20130429
  Receipt Date: 20130620
  Transmission Date: 20140414
  Serious: Yes (Other)
  Sender: FDA-Public Use
  Company Number: PHHY2013AU041546

PATIENT
  Age: 86 Year
  Sex: Male
  Weight: 87.8 kg

DRUGS (1)
  1. ACLASTA [Suspect]
     Indication: OSTEOPOROSIS
     Dosage: 5 MG, UNK
     Route: 042
     Dates: start: 20120427

REACTIONS (3)
  - Hip fracture [Recovered/Resolved]
  - Femur fracture [Recovered/Resolved]
  - Osteolysis [Recovered/Resolved]
